FAERS Safety Report 14408450 (Version 3)
Quarter: 2018Q1

REPORT INFORMATION
  Report Type: Not Available
  Country: US (occurrence: US)
  Receive Date: 20180118
  Receipt Date: 20180307
  Transmission Date: 20180509
  Serious: Yes (Hospitalization)
  Sender: FDA-Public Use
  Company Number: US-NEUROCRINE BIOSCIENCES INC.-2018NBI00103

PATIENT
  Sex: Male

DRUGS (17)
  1. INGREZZA [Suspect]
     Active Substance: VALBENAZINE
     Route: 048
     Dates: start: 20170831, end: 20170910
  2. INGREZZA [Suspect]
     Active Substance: VALBENAZINE
     Route: 048
     Dates: start: 20170911
  3. BUSPIRONE [Concomitant]
     Active Substance: BUSPIRONE HYDROCHLORIDE
  4. REMERON [Concomitant]
     Active Substance: MIRTAZAPINE
  5. TRAZODONE [Concomitant]
     Active Substance: TRAZODONE HYDROCHLORIDE
  6. BACTROBAN [Concomitant]
     Active Substance: MUPIROCIN\MUPIROCIN CALCIUM
  7. NAPROSYN [Concomitant]
     Active Substance: NAPROXEN
  8. BENADRYL [Concomitant]
     Active Substance: DIPHENHYDRAMINE HYDROCHLORIDE
  9. GABAPENTIN. [Concomitant]
     Active Substance: GABAPENTIN
  10. MINIPRESS [Concomitant]
     Active Substance: PRAZOSIN HYDROCHLORIDE
  11. KLONOPIN [Concomitant]
     Active Substance: CLONAZEPAM
  12. LOPERAMIDE [Concomitant]
     Active Substance: LOPERAMIDE
  13. SINGULAIR [Concomitant]
     Active Substance: MONTELUKAST SODIUM
  14. SYMBICORT [Concomitant]
     Active Substance: BUDESONIDE\FORMOTEROL FUMARATE DIHYDRATE
  15. INGREZZA [Suspect]
     Active Substance: VALBENAZINE
     Indication: TARDIVE DYSKINESIA
     Route: 048
     Dates: start: 20170824, end: 20170830
  16. ALBUTEROL. [Concomitant]
     Active Substance: ALBUTEROL
  17. PROTONIX [Concomitant]
     Active Substance: PANTOPRAZOLE SODIUM

REACTIONS (4)
  - Decreased appetite [Recovered/Resolved]
  - Fatigue [Recovered/Resolved]
  - Drooling [Recovered/Resolved]
  - Postoperative wound infection [Recovered/Resolved]

NARRATIVE: CASE EVENT DATE: 2017
